FAERS Safety Report 6614574-3 (Version None)
Quarter: 2010Q1

REPORT INFORMATION
  Report Type: 
  Country: None (occurrence: None)
  Receive Date: 20100304
  Receipt Date: 20100222
  Transmission Date: 20100710
  Serious: Yes (Death, Hospitalization)
  Sender: FDA-Public Use
  Company Number: PH-BAXTER-2010BH001705

PATIENT
  Age: 72 Year
  Sex: Female

DRUGS (1)
  1. DIANEAL [Suspect]
     Indication: PERITONEAL DIALYSIS
     Route: 033
     Dates: start: 20020501, end: 20100216

REACTIONS (4)
  - DIABETES MELLITUS [None]
  - DIARRHOEA [None]
  - PERITONITIS [None]
  - RENAL FAILURE CHRONIC [None]
